FAERS Safety Report 7299129-2 (Version None)
Quarter: 2011Q1

REPORT INFORMATION
  Report Type: 
  Country: None (occurrence: None)
  Receive Date: 20110217
  Receipt Date: 20110208
  Transmission Date: 20110831
  Serious: Yes (Other)
  Sender: FDA-Public Use
  Company Number: TH-ROCHE-759142

PATIENT
  Age: 55 Year
  Sex: Female

DRUGS (1)
  1. CAPECITABINE [Suspect]
     Dosage: DOSE AT 2500 MG/M2 BODY SURFACE AREA PER DAY IN DIVIDED DOSES.
     Route: 048

REACTIONS (2)
  - VITILIGO [None]
  - PALMAR-PLANTAR ERYTHRODYSAESTHESIA SYNDROME [None]
